FAERS Safety Report 7734079-6 (Version None)
Quarter: 2011Q3

REPORT INFORMATION
  Report Type: 
  Country: None (occurrence: None)
  Receive Date: 20110906
  Receipt Date: 20110906
  Transmission Date: 20111222
  Serious: Yes (Hospitalization)
  Sender: FDA-Public Use
  Company Number: None

PATIENT
  Sex: Female
  Weight: 78.5 kg

DRUGS (2)
  1. GEMCITABINE HYDROCHLORIDE [Suspect]
     Dosage: 5700 MG
  2. TARCEVA [Suspect]
     Dosage: 2900 MG

REACTIONS (10)
  - GENERAL PHYSICAL HEALTH DETERIORATION [None]
  - ACTIVITIES OF DAILY LIVING IMPAIRED [None]
  - FAECES DISCOLOURED [None]
  - DIARRHOEA [None]
  - DISEASE PROGRESSION [None]
  - ASTHENIA [None]
  - LIVER FUNCTION TEST ABNORMAL [None]
  - HYPERCALCAEMIA [None]
  - PRE-EXISTING DISEASE [None]
  - FATIGUE [None]
